FAERS Safety Report 13272698 (Version 1)
Quarter: 2017Q1

REPORT INFORMATION
  Report Type: Spontaneous
  Country: US (occurrence: US)
  Receive Date: 20170224
  Receipt Date: 20170224
  Transmission Date: 20170428
  Serious: No
  Sender: FDA-Public Use
  Company Number: None

PATIENT
  Sex: Female
  Weight: 95.71 kg

DRUGS (1)
  1. SUBOXONE [Suspect]
     Active Substance: BUPRENORPHINE HYDROCHLORIDE\NALOXONE HYDROCHLORIDE

REACTIONS (12)
  - Nausea [None]
  - Heart rate irregular [None]
  - Vision blurred [None]
  - Syncope [None]
  - Hypoaesthesia oral [None]
  - Constipation [None]
  - Feeling drunk [None]
  - Headache [None]
  - Hyperhidrosis [None]
  - Disturbance in attention [None]
  - Sleep disorder [None]
  - Vomiting [None]
